FAERS Safety Report 22190542 (Version 1)
Quarter: 2023Q2

REPORT INFORMATION
  Report Type: Spontaneous
  Country: US (occurrence: US)
  Receive Date: 20230410
  Receipt Date: 20230410
  Transmission Date: 20230722
  Serious: No
  Sender: FDA-Public Use
  Company Number: US-UROGEN PHARMA LTD.-2023-UGN-000021

PATIENT

DRUGS (2)
  1. JELMYTO [Suspect]
     Active Substance: MITOMYCIN
     Indication: Transitional cell cancer of the renal pelvis and ureter
     Dosage: 10 CC, ONE TIME PER WEEK (INSTILLATION)
     Dates: start: 20230210, end: 20230210
  2. JELMYTO [Suspect]
     Active Substance: MITOMYCIN
     Dosage: 13 CC, ONE TIME PER WEEK (INSTILLATION)
     Dates: start: 20230217, end: 20230217

REACTIONS (1)
  - Haematuria [Recovered/Resolved]

NARRATIVE: CASE EVENT DATE: 20230210
